FAERS Safety Report 7083166-7 (Version None)
Quarter: 2010Q4

REPORT INFORMATION
  Report Type: 
  Country: None (occurrence: None)
  Receive Date: 20101104
  Receipt Date: 20101026
  Transmission Date: 20110411
  Serious: Yes (Hospitalization)
  Sender: FDA-Public Use
  Company Number: ES-B.I. PHARMACEUTICALS,INC./RIDGEFIELD-2010-DE-05306DE

PATIENT
  Sex: Female
  Weight: 75 kg

DRUGS (2)
  1. WARFARIN SODIUM [Suspect]
     Indication: DEEP VEIN THROMBOSIS
     Route: 048
     Dates: start: 20100514, end: 20100921
  2. IXIA [Concomitant]
     Dosage: 20 MG
     Route: 048
     Dates: end: 20100922

REACTIONS (1)
  - RENAL IMPAIRMENT [None]
